FAERS Safety Report 21074758 (Version 1)
Quarter: 2022Q3

REPORT INFORMATION
  Report Type: Spontaneous
  Country: US (occurrence: None)
  Receive Date: 20220712
  Receipt Date: 20220712
  Transmission Date: 20221027
  Serious: Yes (Hospitalization)
  Sender: FDA-Public Use
  Company Number: None

PATIENT
  Sex: Male

DRUGS (1)
  1. ZENPEP [Suspect]
     Active Substance: PANCRELIPASE AMYLASE\PANCRELIPASE LIPASE\PANCRELIPASE PROTEASE
     Indication: Pancreatic failure
     Dosage: OTHER STRENGTH : 10000 - 32000 UNIT;?OTHER QUANTITY : 10000 UNITS;?FREQUENCY : AS DIRECTED;?
     Route: 048
     Dates: start: 20200418

REACTIONS (1)
  - Coronary arterial stent insertion [None]
